FAERS Safety Report 13675974 (Version 1)
Quarter: 2017Q2

REPORT INFORMATION
  Report Type: Spontaneous
  Country: US (occurrence: US)
  Receive Date: 20170620
  Receipt Date: 20170620
  Transmission Date: 20170830
  Serious: Yes (Other)
  Sender: FDA-Public Use
  Company Number: None

PATIENT
  Age: 71 Year
  Sex: Female
  Weight: 51.75 kg

DRUGS (11)
  1. XIIDRA [Suspect]
     Active Substance: LIFITEGRAST
     Indication: DRY EYE
     Dosage: ?          QUANTITY:1 DROP(S);?
     Route: 047
     Dates: start: 20170220, end: 20170418
  2. METHOTREXATE. [Concomitant]
     Active Substance: METHOTREXATE
  3. CALCIUM [Concomitant]
     Active Substance: CALCIUM
  4. RESTASIS [Concomitant]
     Active Substance: CYCLOSPORINE
  5. AREDS2 [Concomitant]
  6. FOLIC ACID. [Concomitant]
     Active Substance: FOLIC ACID
  7. MULTIVITAMIN [Concomitant]
     Active Substance: VITAMINS
  8. CIMZIA [Concomitant]
     Active Substance: CERTOLIZUMAB PEGOL
  9. LEVOTHYROXINE. [Concomitant]
     Active Substance: LEVOTHYROXINE
  10. BIOTIN [Concomitant]
     Active Substance: BIOTIN
  11. VITAMIN D [Concomitant]
     Active Substance: CHOLECALCIFEROL

REACTIONS (4)
  - Dry eye [None]
  - Eyelid oedema [None]
  - Visual acuity reduced [None]
  - Condition aggravated [None]

NARRATIVE: CASE EVENT DATE: 20170418
